FAERS Safety Report 16009913 (Version 1)
Quarter: 2019Q1

REPORT INFORMATION
  Report Type: Spontaneous
  Country: CN (occurrence: CN)
  Receive Date: 20190227
  Receipt Date: 20190227
  Transmission Date: 20190418
  Serious: Yes (Other)
  Sender: FDA-Public Use
  Company Number: CN-ROCHE-2268317

PATIENT
  Age: 56 Year
  Sex: Male

DRUGS (23)
  1. TENIPOSIDE. [Concomitant]
     Active Substance: TENIPOSIDE
  2. METHOTREXATE. [Concomitant]
     Active Substance: METHOTREXATE
     Dosage: 1-3G/M2
     Route: 065
     Dates: start: 20150911
  3. TEMOZOLOMIDE. [Concomitant]
     Active Substance: TEMOZOLOMIDE
     Dosage: D1-5 Q4W
     Route: 065
  4. ARA-C [Concomitant]
     Active Substance: CYTARABINE
     Dosage: 1G/M2
     Route: 065
     Dates: start: 20151216
  5. ADRIAMYCIN [Concomitant]
     Active Substance: DOXORUBICIN HYDROCHLORIDE
     Indication: NON-HODGKIN^S LYMPHOMA STAGE IV
  6. RITUXIMAB. [Suspect]
     Active Substance: RITUXIMAB
     Indication: NON-HODGKIN^S LYMPHOMA STAGE IV
     Route: 065
  7. CYCLOPHOSPHAMIDE. [Concomitant]
     Active Substance: CYCLOPHOSPHAMIDE
     Indication: NON-HODGKIN^S LYMPHOMA STAGE IV
  8. ARA-C [Concomitant]
     Active Substance: CYTARABINE
     Dosage: 1G/M2
     Route: 065
     Dates: start: 20150911
  9. ARA-C [Concomitant]
     Active Substance: CYTARABINE
     Dosage: 1G/M2
     Route: 065
     Dates: start: 20151112
  10. CALCIUM FOLINATE [Concomitant]
     Active Substance: LEUCOVORIN CALCIUM
     Route: 065
     Dates: start: 20150123
  11. CALCIUM FOLINATE [Concomitant]
     Active Substance: LEUCOVORIN CALCIUM
     Route: 065
     Dates: start: 20150911
  12. CALCIUM FOLINATE [Concomitant]
     Active Substance: LEUCOVORIN CALCIUM
     Route: 065
     Dates: start: 20151216
  13. VINCRISTINE [Concomitant]
     Active Substance: VINCRISTINE
     Indication: NON-HODGKIN^S LYMPHOMA STAGE IV
  14. METHOTREXATE. [Concomitant]
     Active Substance: METHOTREXATE
     Dosage: 1-3G/M2
     Route: 065
     Dates: start: 20151010
  15. METHOTREXATE. [Concomitant]
     Active Substance: METHOTREXATE
     Dosage: 1-3G/M2
     Route: 065
     Dates: start: 20151216
  16. METHOTREXATE. [Concomitant]
     Active Substance: METHOTREXATE
     Dosage: 1-3G/M2
     Route: 065
     Dates: start: 20150123
  17. CALCIUM FOLINATE [Concomitant]
     Active Substance: LEUCOVORIN CALCIUM
     Route: 065
     Dates: start: 20151112
  18. CALCIUM FOLINATE [Concomitant]
     Active Substance: LEUCOVORIN CALCIUM
     Route: 065
     Dates: start: 20151010
  19. THIOTEPA. [Concomitant]
     Active Substance: THIOTEPA
  20. PREDNISONE. [Concomitant]
     Active Substance: PREDNISONE
     Indication: NON-HODGKIN^S LYMPHOMA STAGE IV
  21. METHOTREXATE. [Concomitant]
     Active Substance: METHOTREXATE
     Dosage: 1-3G/M2
     Route: 065
     Dates: start: 20151112
  22. ARA-C [Concomitant]
     Active Substance: CYTARABINE
     Dosage: 1G/M2
     Route: 065
     Dates: start: 20150123
  23. ARA-C [Concomitant]
     Active Substance: CYTARABINE
     Dosage: 1G/M2
     Route: 065
     Dates: start: 20151010

REACTIONS (3)
  - Lacunar infarction [Unknown]
  - Central nervous system lesion [Unknown]
  - Disease recurrence [Unknown]

NARRATIVE: CASE EVENT DATE: 20150803
